FAERS Safety Report 8609855-8 (Version None)
Quarter: 2012Q3

REPORT INFORMATION
  Report Type: 
  Country: None (occurrence: None)
  Receive Date: 20120821
  Receipt Date: 20120626
  Transmission Date: 20120928
  Serious: No
  Sender: FDA-Public Use
  Company Number: US-009507513-1208USA001316

PATIENT

DRUGS (2)
  1. MIRALAX [Suspect]
     Indication: PRODUCT USED FOR UNKNOWN INDICATION
     Dosage: UNK, UNKNOWN
     Route: 048
  2. MIRALAX [Suspect]
     Dosage: 1 DF, ONCE
     Route: 048
     Dates: start: 20120626, end: 20120626

REACTIONS (3)
  - INCORRECT DRUG ADMINISTRATION DURATION [None]
  - OESOPHAGEAL IRRITATION [None]
  - DYSPEPSIA [None]
